FAERS Safety Report 21945126 (Version 1)
Quarter: 2023Q1

REPORT INFORMATION
  Report Type: Report from Study
  Country: BR (occurrence: BR)
  Receive Date: 20230202
  Receipt Date: 20230202
  Transmission Date: 20230418
  Serious: Yes (Hospitalization, Disabling, Other)
  Sender: FDA-Public Use
  Company Number: BR-JNJFOC-20220928450

PATIENT
  Age: 7 Decade
  Sex: Female
  Weight: 50 kg

DRUGS (1)
  1. SIMPONI [Suspect]
     Active Substance: GOLIMUMAB
     Indication: Rheumatoid arthritis
     Route: 058
     Dates: start: 20220809

REACTIONS (5)
  - Rheumatoid arthritis [Recovering/Resolving]
  - Urinary tract infection [Unknown]
  - Depression [Not Recovered/Not Resolved]
  - Drug ineffective [Unknown]
  - Weight decreased [Recovering/Resolving]

NARRATIVE: CASE EVENT DATE: 20220101
